FAERS Safety Report 9012580 (Version 1)
Quarter: 2013Q1

REPORT INFORMATION
  Report Type: Spontaneous
  Country: US (occurrence: US)
  Receive Date: 20130114
  Receipt Date: 20130114
  Transmission Date: 20140127
  Serious: Yes (Hospitalization)
  Sender: FDA-Public Use
  Company Number: US-B.I. PHARMACEUTICALS,INC./RIDGEFIELD-2013-BI-00395BP

PATIENT
  Age: 72 Year
  Sex: Male
  Weight: 113 kg

DRUGS (6)
  1. SPIRIVA [Suspect]
     Indication: CHRONIC OBSTRUCTIVE PULMONARY DISEASE
     Dosage: 18 MCG
     Route: 055
     Dates: start: 201210
  2. METFORMIN [Concomitant]
     Indication: DIABETES MELLITUS
  3. FUROSEMIDE [Concomitant]
     Indication: FLUID RETENTION
  4. K-CHLOR [Concomitant]
     Indication: SUPPLEMENTATION THERAPY
  5. TRACLEER [Concomitant]
     Indication: PULMONARY HYPERTENSION
  6. METOPROLOL [Concomitant]
     Indication: HYPERTENSION

REACTIONS (1)
  - Dyspnoea [Recovered/Resolved]
